FAERS Safety Report 4619989-0 (Version None)
Quarter: 2005Q1

REPORT INFORMATION
  Report Type: 
  Country: None (occurrence: None)
  Receive Date: 20050324
  Receipt Date: 20050314
  Transmission Date: 20050727
  Serious: Yes (Hospitalization)
  Sender: FDA-Public Use
  Company Number: 2005CG00321

PATIENT
  Age: 55 Year
  Sex: Male

DRUGS (10)
  1. FOSCAVIR [Suspect]
     Indication: CYTOMEGALOVIRUS INFECTION
     Dates: start: 20041230
  2. FUNGIZONE [Suspect]
     Indication: ASPERGILLOSIS
     Dates: start: 20050104
  3. GENTAMICIN [Suspect]
     Indication: ENDOCARDITIS BACTERIAL
     Dates: start: 20041222
  4. CYMEVAN [Suspect]
     Indication: CYTOMEGALOVIRUS INFECTION
     Dosage: 160 MG DAILY PO
     Route: 048
     Dates: start: 20041214
  5. VFEND [Suspect]
     Indication: ASPERGILLOSIS
     Dates: start: 20041230, end: 20050104
  6. CLAMOXYL/SCH/ [Suspect]
     Indication: ENDOCARDITIS BACTERIAL
     Dosage: 2 G SID PO
     Route: 048
     Dates: start: 20041222
  7. EUPANTOL [Suspect]
     Dosage: 40 MG DAILY PO
     Route: 048
     Dates: start: 20041214
  8. HYDROCORTISONE HEMISUCCINATE [Concomitant]
  9. CORTANCYL [Concomitant]
  10. BACTRIM [Concomitant]

REACTIONS (9)
  - ASPERGILLOSIS [None]
  - CHOLESTASIS [None]
  - CYTOMEGALOVIRUS INFECTION [None]
  - ENDOCARDITIS BACTERIAL [None]
  - FEBRILE BONE MARROW APLASIA [None]
  - HISTIOCYTOSIS HAEMATOPHAGIC [None]
  - MULTI-ORGAN FAILURE [None]
  - PATHOGEN RESISTANCE [None]
  - TOXIC EPIDERMAL NECROLYSIS [None]
